FAERS Safety Report 6440600-0 (Version None)
Quarter: 2009Q4

REPORT INFORMATION
  Report Type: 
  Country: None (occurrence: None)
  Receive Date: 20091113
  Receipt Date: 20091106
  Transmission Date: 20100525
  Serious: Yes (Hospitalization)
  Sender: FDA-Public Use
  Company Number: JP-VALEANT-2009VX001318

PATIENT
  Age: 14 Year
  Sex: Female

DRUGS (2)
  1. DIHYDROERGOTAMINE MESYLATE [Suspect]
     Indication: MIGRAINE
     Route: 048
  2. DIHYDROERGOTAMINE MESYLATE [Suspect]
     Dosage: DOSE UNIT:
     Route: 048
     Dates: start: 20090713, end: 20090713

REACTIONS (1)
  - OVERDOSE [None]
